FAERS Safety Report 14250756 (Version 4)
Quarter: 2018Q1

REPORT INFORMATION
  Report Type: Spontaneous
  Country: US (occurrence: US)
  Receive Date: 20171205
  Receipt Date: 20180309
  Transmission Date: 20180508
  Serious: No
  Sender: FDA-Public Use
  Company Number: US-PFIZER INC-2017516808

PATIENT
  Age: 76 Year
  Sex: Male

DRUGS (6)
  1. GENOTROPIN MQ [Suspect]
     Active Substance: SOMATROPIN
     Dosage: 0.25 ML, DAILY
     Route: 058
     Dates: start: 20170818
  2. GENOTROPIN [Suspect]
     Active Substance: SOMATROPIN
     Dosage: UNK
  3. TESTOSTERONE CIPIONATE [Suspect]
     Active Substance: TESTOSTERONE
     Indication: BONE DISORDER
     Dosage: UNK
  4. GENOTROPIN MQ [Suspect]
     Active Substance: SOMATROPIN
     Dosage: 0.25 ML, DAILY
     Route: 058
  5. MOTRIN [Concomitant]
     Active Substance: IBUPROFEN
     Dosage: 200 MG, UNK
     Route: 048
  6. ANDROGEL [Suspect]
     Active Substance: TESTOSTERONE
     Dosage: 5 G, DAILY
     Route: 062
     Dates: end: 20171004

REACTIONS (5)
  - Fatigue [Unknown]
  - Pain [Unknown]
  - Condition aggravated [Unknown]
  - Sleep disorder [Not Recovered/Not Resolved]
  - Headache [Unknown]
